FAERS Safety Report 17565946 (Version 1)
Quarter: 2020Q1

REPORT INFORMATION
  Report Type: Report from Study
  Country: None (occurrence: IL)
  Receive Date: 20200320
  Receipt Date: 20200320
  Transmission Date: 20200409
  Serious: Yes (Hospitalization)
  Sender: FDA-Public Use
  Company Number: IL-ABBVIE-20K-082-3329108-00

PATIENT
  Sex: Male

DRUGS (2)
  1. DUODOPA [Suspect]
     Active Substance: CARBIDOPA\LEVODOPA
     Indication: PARKINSON^S DISEASE
     Route: 050
     Dates: start: 20170529
  2. DUODOPA [Suspect]
     Active Substance: CARBIDOPA\LEVODOPA
     Dosage: CD: MORNING  7ML,CD DAY 5.1ML/HOUR,CD NIGHT 3ML/HOUR,ED 1.5ML
     Route: 050

REACTIONS (4)
  - Hyponatraemia [Unknown]
  - Dysstasia [Unknown]
  - Dyskinesia [Unknown]
  - Hyperkalaemia [Recovered/Resolved]
